FAERS Safety Report 23091454 (Version 1)
Quarter: 2023Q4

REPORT INFORMATION
  Report Type: Spontaneous
  Country: US (occurrence: US)
  Receive Date: 20231020
  Receipt Date: 20231020
  Transmission Date: 20240110
  Serious: Yes (Other)
  Sender: FDA-Public Use
  Company Number: US-BAUSCHBL-2023BNL009854

PATIENT
  Age: 91 Year
  Sex: Female

DRUGS (3)
  1. SODIUM CHLORIDE [Suspect]
     Active Substance: SODIUM CHLORIDE
     Indication: Fibrinous bronchitis
     Route: 065
  2. ALBUTEROL [Suspect]
     Active Substance: ALBUTEROL
     Indication: Fibrinous bronchitis
     Route: 065
  3. HYDROXYTOLUIC ACID [Suspect]
     Active Substance: HYDROXYTOLUIC ACID
     Indication: Fibrinous bronchitis
     Route: 065

REACTIONS (2)
  - Therapy partial responder [Unknown]
  - Drug intolerance [Unknown]
